FAERS Safety Report 20725475 (Version 1)
Quarter: 2022Q2

REPORT INFORMATION
  Report Type: Spontaneous
  Country: ME (occurrence: ME)
  Receive Date: 20220419
  Receipt Date: 20220419
  Transmission Date: 20220721
  Serious: Yes (Death)
  Sender: FDA-Public Use
  Company Number: ME-KOREA IPSEN Pharma-2022-10884

PATIENT
  Age: 58 Year
  Sex: Female

DRUGS (7)
  1. LANREOTIDE ACETATE [Suspect]
     Active Substance: LANREOTIDE ACETATE
     Indication: Neuroendocrine carcinoma metastatic
     Route: 065
     Dates: start: 201909, end: 20191117
  2. OMEPRAZOLE [Concomitant]
     Active Substance: OMEPRAZOLE
     Dates: start: 201909
  3. OMEPRAZOLE [Concomitant]
     Active Substance: OMEPRAZOLE
  4. METFORMIN HYDROCHLORIDE [Concomitant]
     Active Substance: METFORMIN HYDROCHLORIDE
     Indication: Type 2 diabetes mellitus
  5. BROMOCRIPTINE [Concomitant]
     Active Substance: BROMOCRIPTINE
     Indication: Macroprolactinaemia
  6. BROMOCRIPTINE [Concomitant]
     Active Substance: BROMOCRIPTINE
     Indication: Pancreatic carcinoma
  7. SANDOSTATIN [Concomitant]
     Active Substance: OCTREOTIDE ACETATE
     Indication: Pancreatic carcinoma
     Route: 058

REACTIONS (12)
  - Pyrexia [Fatal]
  - Abdominal pain [Fatal]
  - Vomiting [Fatal]
  - Diarrhoea [Fatal]
  - Malaise [Fatal]
  - Headache [Fatal]
  - Somnolence [Fatal]
  - Condition aggravated [Fatal]
  - Coma [Fatal]
  - Acidosis [Fatal]
  - Azotaemia [Fatal]
  - Anuria [Fatal]

NARRATIVE: CASE EVENT DATE: 20191201
